FAERS Safety Report 23846159 (Version 2)
Quarter: 2024Q3

REPORT INFORMATION
  Report Type: Spontaneous
  Country: US (occurrence: None)
  Receive Date: 20240512
  Receipt Date: 20240715
  Transmission Date: 20241017
  Serious: No
  Sender: ASTRAZENECA
  Company Number: 2024A103508

PATIENT
  Sex: Female

DRUGS (1)
  1. BYDUREON BCISE [Suspect]
     Active Substance: EXENATIDE
     Dates: start: 2018

REACTIONS (4)
  - Injection site pain [Unknown]
  - Haemorrhage [Unknown]
  - Device difficult to use [Unknown]
  - Product container issue [Unknown]

NARRATIVE: CASE EVENT DATE: 20240429
